FAERS Safety Report 6192814-5 (Version None)
Quarter: 2009Q2

REPORT INFORMATION
  Report Type: 
  Country: None (occurrence: None)
  Receive Date: 20090518
  Receipt Date: 20090511
  Transmission Date: 20091009
  Serious: Yes (Death, Other)
  Sender: FDA-Public Use
  Company Number: US-CELGENEUS-163-21880-09020947

PATIENT
  Sex: Male

DRUGS (3)
  1. REVLIMID [Suspect]
     Indication: MULTIPLE MYELOMA
     Route: 048
     Dates: start: 20081107, end: 20090119
  2. REVLIMID [Suspect]
     Dosage: 15-25 MG
     Route: 048
     Dates: start: 20071015, end: 20081001
  3. DECADRON [Concomitant]
     Indication: DRUG USE FOR UNKNOWN INDICATION
     Route: 048

REACTIONS (5)
  - ANOREXIA [None]
  - FATIGUE [None]
  - HEPATIC FUNCTION ABNORMAL [None]
  - MULTIPLE MYELOMA [None]
  - PANCYTOPENIA [None]
